FAERS Safety Report 17232829 (Version 3)
Quarter: 2020Q1

REPORT INFORMATION
  Report Type: Spontaneous
  Country: JP (occurrence: JP)
  Receive Date: 20200103
  Receipt Date: 20200108
  Transmission Date: 20200409
  Serious: Yes (Death, Other)
  Sender: FDA-Public Use
  Company Number: JP-BRISTOL-MYERS SQUIBB COMPANY-BMS-2019-125634

PATIENT
  Age: 70 Year
  Sex: Male
  Weight: 54.5 kg

DRUGS (1)
  1. OPDIVO [Suspect]
     Active Substance: NIVOLUMAB
     Indication: GASTRIC CANCER
     Dosage: 240 MG
     Route: 041
     Dates: start: 20191219

REACTIONS (2)
  - Lymphangiosis carcinomatosa [Unknown]
  - Malignant neoplasm progression [Fatal]

NARRATIVE: CASE EVENT DATE: 20191230
